FAERS Safety Report 25747720 (Version 1)
Quarter: 2025Q3

REPORT INFORMATION
  Report Type: Spontaneous
  Country: US (occurrence: US)
  Receive Date: 20250901
  Receipt Date: 20250901
  Transmission Date: 20251020
  Serious: No
  Sender: BRISTOL-MYERS SQUIBB COMPANY
  Company Number: US-BRISTOL-MYERS SQUIBB COMPANY-2025-120558

PATIENT
  Age: 75 Year
  Sex: Female
  Weight: 66.68 kg

DRUGS (1)
  1. ORENCIA [Suspect]
     Active Substance: ABATACEPT
     Indication: Rheumatoid arthritis
     Route: 058
     Dates: start: 20250630

REACTIONS (4)
  - Device operational issue [Unknown]
  - Therapy interrupted [Unknown]
  - Animal scratch [Unknown]
  - Device leakage [Unknown]

NARRATIVE: CASE EVENT DATE: 20250801
